FAERS Safety Report 18483048 (Version 8)
Quarter: 2025Q2

REPORT INFORMATION
  Report Type: Report from Study
  Country: CA (occurrence: CA)
  Receive Date: 20201109
  Receipt Date: 20250401
  Transmission Date: 20250716
  Serious: Yes (Other)
  Sender: TAKEDA
  Company Number: CA-TAKEDA-2020TUS046681

PATIENT
  Sex: Female

DRUGS (13)
  1. VEDOLIZUMAB [Suspect]
     Active Substance: VEDOLIZUMAB
     Indication: Crohn^s disease
  2. VEDOLIZUMAB [Suspect]
     Active Substance: VEDOLIZUMAB
  3. VEDOLIZUMAB [Suspect]
     Active Substance: VEDOLIZUMAB
  4. VEDOLIZUMAB [Suspect]
     Active Substance: VEDOLIZUMAB
  5. VEDOLIZUMAB [Suspect]
     Active Substance: VEDOLIZUMAB
  6. VEDOLIZUMAB [Suspect]
     Active Substance: VEDOLIZUMAB
  7. VEDOLIZUMAB [Suspect]
     Active Substance: VEDOLIZUMAB
  8. PREDNISONE [Concomitant]
     Active Substance: PREDNISONE
     Dosage: 7.5 MILLIGRAM, QD
  9. WARFARIN [Concomitant]
     Active Substance: WARFARIN
     Indication: Thrombosis
  10. LOPERAMIDE [Concomitant]
     Active Substance: LOPERAMIDE
  11. PREVACID [Concomitant]
     Active Substance: LANSOPRAZOLE
  12. VITAMIN D [Concomitant]
     Active Substance: VITAMIN D NOS
  13. B12 [Concomitant]

REACTIONS (9)
  - Crohn^s disease [Recovering/Resolving]
  - Dehydration [Recovering/Resolving]
  - Diarrhoea [Unknown]
  - Frequent bowel movements [Unknown]
  - Glucose tolerance impaired [Unknown]
  - COVID-19 [Unknown]
  - Heart rate increased [Unknown]
  - Vomiting [Recovering/Resolving]
  - Fatigue [Unknown]
